FAERS Safety Report 9217659 (Version 1)
Quarter: 2013Q2

REPORT INFORMATION
  Report Type: Spontaneous
  Country: FR (occurrence: FR)
  Receive Date: 20130408
  Receipt Date: 20130408
  Transmission Date: 20140414
  Serious: Yes (Hospitalization)
  Sender: FDA-Public Use
  Company Number: FR-ROCHE-1210612

PATIENT
  Age: 66 Year
  Sex: Female

DRUGS (6)
  1. TAMIFLU [Suspect]
     Indication: INFLUENZA
     Route: 048
     Dates: start: 20130219, end: 20130220
  2. PREVISCAN [Suspect]
     Indication: PULMONARY EMBOLISM
     Route: 048
     Dates: end: 20130302
  3. PREVISCAN [Suspect]
     Indication: VENOUS THROMBOSIS
  4. PARACETAMOL [Suspect]
     Indication: INFLUENZA
     Route: 065
     Dates: start: 20130219, end: 20130302
  5. PANFUREX [Suspect]
     Indication: PRODUCT USED FOR UNKNOWN INDICATION
     Route: 048
     Dates: start: 20130222, end: 20130302
  6. SMECTA [Suspect]
     Indication: PRODUCT USED FOR UNKNOWN INDICATION
     Route: 048
     Dates: start: 20130222, end: 20130302

REACTIONS (1)
  - International normalised ratio increased [Unknown]
